FAERS Safety Report 9365808 (Version 5)
Quarter: 2013Q3

REPORT INFORMATION
  Report Type: Report from Study
  Country: US (occurrence: US)
  Receive Date: 20130625
  Receipt Date: 20130910
  Transmission Date: 20140515
  Serious: Yes (Death, Hospitalization)
  Sender: FDA-Public Use
  Company Number: PHHO2013US007605

PATIENT
  Age: 62 Year
  Sex: Male
  Weight: 92.97 kg

DRUGS (21)
  1. BEZ235 [Suspect]
     Indication: NEOPLASM
     Dosage: 800 MG, QD
     Route: 048
     Dates: start: 20130424, end: 20130531
  2. AFINITOR [Suspect]
     Indication: NEOPLASM
     Dosage: 2.5 MG, QD
     Route: 048
     Dates: start: 20130424, end: 20130531
  3. ANUSOL HC [Concomitant]
     Indication: HAEMORRHOIDS
     Dosage: 25 MG, PRN
     Dates: start: 20130529
  4. HALDOL [Concomitant]
     Indication: AGITATION
     Dosage: 2 MG,  (EVERY 6 HR PRN)
     Route: 048
     Dates: start: 20130611
  5. HALDOL [Concomitant]
     Indication: DELIRIUM
  6. HEPARIN [Concomitant]
     Indication: BRAIN NEOPLASM
     Dosage: 5000 U, BID
     Route: 058
     Dates: start: 20130611
  7. ROBITUSSIN PE [Concomitant]
     Dosage: 10 ML, AS NEEDED
     Route: 048
  8. COMPAZINE [Concomitant]
     Indication: NAUSEA
     Dosage: 10 MG, EVERY 6 HOURS PRN
     Route: 048
     Dates: start: 20130424
  9. COMPAZINE [Concomitant]
     Dosage: UNK
     Dates: start: 20130531
  10. GAS X [Concomitant]
     Dosage: EVERY MORNING
     Route: 048
  11. ROXICODONE [Concomitant]
     Indication: PAIN
     Dosage: 5 MG, 6 HR PRN
     Route: 048
     Dates: start: 20130609
  12. DIOVAN [Concomitant]
     Dosage: 320 MG, UNK
     Route: 048
     Dates: start: 20130601
  13. HYDROCORTISONE W/PRAMOCAINE [Concomitant]
     Dosage: 2 TIMES DAILY
     Route: 054
     Dates: start: 20130608
  14. KEPPRA [Concomitant]
     Indication: EPILEPSY
     Dosage: 1500 MG, UNK
     Route: 042
     Dates: start: 20130603
  15. KEPPRA [Concomitant]
     Dosage: 1000 MG, (1 1/2 TAB IN MORNING AND 2 TAB IN EVENNG)
     Dates: start: 20130513
  16. KEPPRA [Concomitant]
     Dosage: 2000 MG, AT BAD TIME
     Route: 042
     Dates: start: 20130602
  17. EMLA [Concomitant]
     Indication: EPILEPSY
     Route: 061
  18. ATIVAN [Concomitant]
     Indication: EPILEPSY
     Dosage: 0.5 MG, UNK
     Dates: start: 20021101
  19. MILK OF MAGNESIA [Concomitant]
     Indication: CONSTIPATION
     Dosage: 10 ML, UNK
     Dates: start: 20130531
  20. MULTIVITAMIN [Concomitant]
     Route: 048
  21. PRILOSEC [Concomitant]
     Dosage: 20 MG, UNK
     Route: 048
     Dates: start: 20130601

REACTIONS (5)
  - Sepsis [Not Recovered/Not Resolved]
  - Atelectasis [Recovered/Resolved]
  - Pneumonia [Recovered/Resolved]
  - Diverticulitis [Not Recovered/Not Resolved]
  - Disease progression [Fatal]
